FAERS Safety Report 15092358 (Version 1)
Quarter: 2018Q2

REPORT INFORMATION
  Report Type: Spontaneous
  Country: ZA (occurrence: ZA)
  Receive Date: 20180629
  Receipt Date: 20180629
  Transmission Date: 20180711
  Serious: Yes (Hospitalization)
  Sender: FDA-Public Use
  Company Number: ZA-PFIZER INC-2018261531

PATIENT
  Age: 78 Year
  Sex: Female

DRUGS (9)
  1. EPILIM [Suspect]
     Active Substance: VALPROATE SODIUM
     Dosage: 300 MG, UNK
  2. IVEDAL [Suspect]
     Active Substance: ZOLPIDEM TARTRATE
     Dosage: 10 MG, UNK
  3. ARCOXIA [Suspect]
     Active Substance: ETORICOXIB
     Dosage: 90 MG, UNK
  4. DOPAQUEL [Suspect]
     Active Substance: QUETIAPINE
     Dosage: 25 MG, UNK
  5. EPLEPTIN [Suspect]
     Active Substance: GABAPENTIN
     Dosage: 300 MG, UNK
  6. ADCO-SIMVASTATIN [Suspect]
     Active Substance: SIMVASTATIN
     Dosage: 20 MG, UNK
  7. LYRICA [Suspect]
     Active Substance: PREGABALIN
     Dosage: 75 MG, UNK
  8. ENAP /00574902/ [Suspect]
     Active Substance: ENALAPRIL MALEATE
     Dosage: 20 MG, UNK
  9. ADCO-RETIC [Suspect]
     Active Substance: AMILORIDE HYDROCHLORIDE\HYDROCHLOROTHIAZIDE
     Dosage: AMILORIDE HYDROCHLORIDE 5MG, HYDROCHLOROTHIAZIDE 50 MG

REACTIONS (2)
  - Pneumonia [Unknown]
  - Pulmonary thrombosis [Unknown]
